FAERS Safety Report 22062027 (Version 3)
Quarter: 2023Q2

REPORT INFORMATION
  Report Type: Spontaneous
  Country: FR (occurrence: FR)
  Receive Date: 20230304
  Receipt Date: 20230512
  Transmission Date: 20230722
  Serious: Yes (Hospitalization, Other)
  Sender: FDA-Public Use
  Company Number: FR-PHARMATHEN-GPV2023PHT057976

PATIENT
  Age: 53 Year
  Sex: Male

DRUGS (3)
  1. LINEZOLID [Suspect]
     Active Substance: LINEZOLID
     Indication: Staphylococcal mediastinitis
     Dosage: 1200 MILLIGRAM, ONCE A DAY (600MG*2/D)
     Route: 065
     Dates: start: 20210411, end: 20210414
  2. MEROPENEM [Suspect]
     Active Substance: MEROPENEM
     Indication: Staphylococcal mediastinitis
     Dosage: 6 GRAM, ONCE A DAY (6G/D)
     Route: 065
     Dates: start: 20210411, end: 20210414
  3. GENTAMICIN [Suspect]
     Active Substance: GENTAMICIN
     Indication: Staphylococcal mediastinitis
     Dosage: 8 MILLIGRAM/KILOGRAM (2 INJECTIONS OF GENTAMICIN (8MG/KG)
     Route: 065
     Dates: start: 202104

REACTIONS (3)
  - Acute kidney injury [Not Recovered/Not Resolved]
  - Drug resistance [Unknown]
  - Drug ineffective [Unknown]

NARRATIVE: CASE EVENT DATE: 20210101
